FAERS Safety Report 10579939 (Version 4)
Quarter: 2015Q2

REPORT INFORMATION
  Report Type: Report from Study
  Country: KR (occurrence: KR)
  Receive Date: 20141112
  Receipt Date: 20150511
  Transmission Date: 20150821
  Serious: Yes (Hospitalization, Other)
  Sender: FDA-Public Use
  Company Number: KR-GLAXOSMITHKLINE-KR2014GSK018837

PATIENT
  Age: 50 Year
  Weight: 66 kg

DRUGS (16)
  1. ALLERGINON [Concomitant]
     Indication: ARTHROPOD BITE
     Dosage: 1 DF, BID
     Route: 048
     Dates: start: 20141021, end: 20141114
  2. DURICEF [Concomitant]
     Active Substance: CEFADROXIL
     Indication: BACTERIAL INFECTION
  3. AIRTAL [Concomitant]
     Indication: URINARY TRACT INFECTION
     Dosage: UNK
     Route: 048
     Dates: start: 20141021, end: 20141024
  4. BANAN [Concomitant]
     Active Substance: CEFPODOXIME PROXETIL
     Indication: URINARY TRACT INFECTION
     Dosage: UNK
     Route: 048
     Dates: start: 20141021, end: 20141024
  5. RETAPAMULIN [Suspect]
     Active Substance: RETAPAMULIN
     Indication: ARTHROPOD BITE
     Dosage: UNK
     Dates: start: 20141021, end: 20141027
  6. RETAPAMULIN [Suspect]
     Active Substance: RETAPAMULIN
     Indication: BACTERIAL INFECTION
  7. GLIPTIDE [Concomitant]
     Indication: GASTRITIS PROPHYLAXIS
     Dosage: 1 DF, TID
     Route: 048
     Dates: start: 20141021, end: 20141114
  8. UCERAX [Concomitant]
     Indication: ARTHROPOD BITE
     Dosage: 0.5 DF, TID
     Route: 048
     Dates: start: 20141021, end: 20141114
  9. SYNATURA [Concomitant]
     Dosage: 1 PACK, TID
  10. ERDOS [Concomitant]
     Dosage: 300 MG, TID
  11. UCERAX [Concomitant]
     Indication: BACTERIAL INFECTION
  12. DURICEF [Concomitant]
     Active Substance: CEFADROXIL
     Indication: ARTHROPOD BITE
     Route: 048
  13. GASTER [Concomitant]
     Active Substance: FAMOTIDINE
     Indication: GASTRITIS PROPHYLAXIS
     Dosage: UNK
     Route: 048
     Dates: start: 20141021, end: 20141024
  14. STOGAR [Concomitant]
     Indication: ARTHROPOD BITE
     Dosage: 1 DF, BID
     Route: 048
     Dates: start: 20141021, end: 20141114
  15. STOGAR [Concomitant]
     Indication: BACTERIAL INFECTION
  16. ALLERGINON [Concomitant]
     Indication: BACTERIAL INFECTION

REACTIONS (1)
  - Pneumonia [Recovered/Resolved]

NARRATIVE: CASE EVENT DATE: 20141104
